FAERS Safety Report 13122484 (Version 1)
Quarter: 2017Q1

REPORT INFORMATION
  Report Type: Other
  Country: None (occurrence: US)
  Receive Date: 20170117
  Receipt Date: 20170117
  Transmission Date: 20170428
  Serious: Yes (Hospitalization, Other)
  Sender: FDA-Public Use
  Company Number: US-GUTHY-RENKER LLC-1062075

PATIENT
  Age: 36 Year
  Sex: Female

DRUGS (2)
  1. IT COSMETICS BYE BYE FOUNDATION WITH SPF 50+ [Suspect]
     Active Substance: TITANIUM DIOXIDE\ZINC OXIDE
     Indication: PROPHYLAXIS AGAINST SOLAR RADIATION
     Route: 061
     Dates: start: 20161219
  2. TAKES FLONASE IN SPRING TIME [Concomitant]

REACTIONS (2)
  - Shock [None]
  - Urticaria [Recovered/Resolved]

NARRATIVE: CASE EVENT DATE: 20161219
